FAERS Safety Report 25121925 (Version 1)
Quarter: 2025Q1

REPORT INFORMATION
  Report Type: Spontaneous
  Country: IN (occurrence: IN)
  Receive Date: 20250326
  Receipt Date: 20250326
  Transmission Date: 20250409
  Serious: Yes (Other)
  Sender: UCB
  Company Number: IN-UCBSA-2025016717

PATIENT
  Age: 26 Year
  Sex: Female

DRUGS (4)
  1. LEVETIRACETAM [Suspect]
     Active Substance: LEVETIRACETAM
     Indication: Congenital central nervous system anomaly
     Route: 042
  2. LEVETIRACETAM [Suspect]
     Active Substance: LEVETIRACETAM
     Indication: Off label use
  3. DEXAMETHASONE [Suspect]
     Active Substance: DEXAMETHASONE
     Indication: Congenital central nervous system anomaly
     Route: 030
  4. LABETALOL [Suspect]
     Active Substance: LABETALOL
     Indication: Congenital central nervous system anomaly
     Route: 042

REACTIONS (5)
  - Premature delivery [Unknown]
  - Eclampsia [Unknown]
  - Caesarean section [Unknown]
  - Off label use [Unknown]
  - Maternal exposure during pregnancy [Unknown]
